FAERS Safety Report 19372369 (Version 2)
Quarter: 2021Q2

REPORT INFORMATION
  Report Type: Report from Study
  Country: CA (occurrence: CA)
  Receive Date: 20210604
  Receipt Date: 20210610
  Transmission Date: 20210717
  Serious: Yes (Other)
  Sender: FDA-Public Use
  Company Number: CA-JNJFOC-20210559594

PATIENT
  Age: 12 Year
  Sex: Female
  Weight: 37 kg

DRUGS (2)
  1. REMICADE [Suspect]
     Active Substance: INFLIXIMAB
     Indication: CROHN^S DISEASE
     Route: 042
     Dates: start: 20210312, end: 20210531
  2. REMICADE [Suspect]
     Active Substance: INFLIXIMAB
     Dosage: 01?JUN?2021, THE PATIENT RECEIVED 04TH INFLIXIMAB INFUSION DOSE OF 400 MG.
     Route: 042
     Dates: start: 20210531

REACTIONS (3)
  - Off label use [Unknown]
  - Product use issue [Unknown]
  - Diarrhoea haemorrhagic [Not Recovered/Not Resolved]

NARRATIVE: CASE EVENT DATE: 2021
